FAERS Safety Report 19895462 (Version 1)
Quarter: 2021Q3

REPORT INFORMATION
  Report Type: Spontaneous
  Country: LV (occurrence: LV)
  Receive Date: 20210929
  Receipt Date: 20210929
  Transmission Date: 20211014
  Serious: Yes (Other)
  Sender: FDA-Public Use
  Company Number: LV-MYLANLABS-2021M1066521

PATIENT
  Age: 22 Year
  Sex: Female
  Weight: 58 kg

DRUGS (2)
  1. INSULIN ASPART MYLAN [Suspect]
     Active Substance: INSULIN ASPART
     Indication: TYPE 1 DIABETES MELLITUS
     Dosage: (10?12 DV OR 12?14 DV DOSE ADJUSTED TO GLYCEMIC LEVELS)
     Route: 058
  2. INSULIN GLARGINE [Suspect]
     Active Substance: INSULIN GLARGINE
     Indication: TYPE 1 DIABETES MELLITUS
     Dosage: 28 IU QD, (28 DV, ONCE IN THE EVENING)
     Route: 058

REACTIONS (4)
  - Diabetic hepatopathy [Recovering/Resolving]
  - Hyperglycaemia [Recovering/Resolving]
  - Pyoderma [Unknown]
  - Non-alcoholic steatohepatitis [Recovering/Resolving]

NARRATIVE: CASE EVENT DATE: 20200906
